FAERS Safety Report 4938374-5 (Version None)
Quarter: 2006Q1

REPORT INFORMATION
  Report Type: 
  Country: None (occurrence: None)
  Receive Date: 20060113
  Receipt Date: 20050524
  Transmission Date: 20060701
  Serious: Yes (Other)
  Sender: FDA-Public Use
  Company Number: HQWYE823304AUG04

PATIENT
  Age: 61 Year
  Sex: Female
  Weight: 88.98 kg

DRUGS (7)
  1. PREMPRO [Suspect]
     Dosage: 0.625MG/2.5MG
     Dates: start: 19960101
  2. CYCRIN [Suspect]
  3. PREMARIN [Suspect]
     Dosage: 0.3MG
     Dates: start: 20020101
  4. PROVERA [Suspect]
     Dosage: SEE IMAGE
     Dates: start: 19950101, end: 19960101
  5. PROVERA [Suspect]
     Dosage: SEE IMAGE
     Dates: start: 20020101
  6. SYNTHROID [Concomitant]
  7. ALTACE [Concomitant]

REACTIONS (1)
  - BREAST CANCER [None]
